FAERS Safety Report 7359034-X (Version None)
Quarter: 2011Q1

REPORT INFORMATION
  Report Type: 
  Country: None (occurrence: None)
  Receive Date: 20110317
  Receipt Date: 20110311
  Transmission Date: 20110831
  Serious: Yes (Other)
  Sender: FDA-Public Use
  Company Number: JP-PFIZER INC-2011038689

PATIENT
  Age: 78 Year
  Sex: Female

DRUGS (7)
  1. GASTER [Concomitant]
     Dosage: UNK
  2. SERMION [Concomitant]
  3. PAXIL [Concomitant]
     Dosage: UNK
  4. ARICEPT [Concomitant]
  5. METHYCOBAL [Concomitant]
  6. AZULFIDINE [Suspect]
     Indication: RHEUMATOID ARTHRITIS
     Dosage: 1000 MG/DAY
     Route: 048
     Dates: start: 20101015
  7. PREDONINE [Concomitant]

REACTIONS (2)
  - RENAL DISORDER [None]
  - CREATININE RENAL CLEARANCE INCREASED [None]
